FAERS Safety Report 10045664 (Version 1)
Quarter: 2014Q1

REPORT INFORMATION
  Report Type: Spontaneous
  Country: US (occurrence: None)
  Receive Date: 20140306
  Receipt Date: 20140306
  Transmission Date: 20141002
  Serious: Yes (Hospitalization)
  Sender: FDA-Public Use
  Company Number: 163-21880-13060349

PATIENT
  Age: 66 Year
  Sex: Male
  Weight: 94.8 kg

DRUGS (9)
  1. REVLIMID (LENALIDOMIDE) (10 MILLIGRAM, CAPSULES) [Suspect]
     Indication: LYMPHOMA
     Route: 048
     Dates: start: 201305
  2. NEXIUM (ESOMEPRAZOLE) (CAPSULES) [Concomitant]
  3. CRESTOR (ROSUVASTATIN) (TABLETS) [Concomitant]
  4. ASPIRIN (ACETYLSALICYLIC ACID) (TABLETS) [Concomitant]
  5. LEVOFLOXACIN (LEVOFLOXACIN) (TABLETS) [Concomitant]
  6. TOPROL XL (METOPROLOL SUCCINATE)) (TABLETS) [Concomitant]
  7. BENZONATATE (BENZONATATE) (CAPSULES) [Concomitant]
  8. CEFUROXIME AXETIL (CEFUROXIME AXETIL) (TABLETS) [Concomitant]
  9. ATIVAN (LORAZEPAM) (TABLETS) [Concomitant]

REACTIONS (3)
  - Pneumonia [None]
  - Scab [None]
  - Local swelling [None]
